FAERS Safety Report 8220185-9 (Version None)
Quarter: 2012Q1

REPORT INFORMATION
  Report Type: 
  Country: None (occurrence: None)
  Receive Date: 20120320
  Receipt Date: 20120309
  Transmission Date: 20120608
  Serious: Yes (Hospitalization)
  Sender: FDA-Public Use
  Company Number: US-BAYER-2011-088233

PATIENT
  Age: 39 Year
  Sex: Female
  Weight: 45 kg

DRUGS (5)
  1. DROSPIRENONE AND ETHINYL ESTRADIOL [Suspect]
     Indication: PREMENSTRUAL SYNDROME
  2. DROSPIRENONE AND ETHINYL ESTRADIOL [Suspect]
     Indication: MENSTRUATION IRREGULAR
     Dosage: UNK
     Dates: start: 20091001, end: 20091201
  3. TREXIMET [Concomitant]
     Indication: MIGRAINE
     Dosage: UNK
     Dates: start: 20081201, end: 20090901
  4. MOTRIN [Concomitant]
     Indication: PAIN MANAGEMENT
  5. TYLENOL [Concomitant]

REACTIONS (3)
  - INJURY [None]
  - PULMONARY EMBOLISM [None]
  - PAIN [None]
